FAERS Safety Report 12294244 (Version 1)
Quarter: 2016Q2

REPORT INFORMATION
  Report Type: Spontaneous
  Country: US (occurrence: None)
  Receive Date: 20160421
  Receipt Date: 20160421
  Transmission Date: 20160815
  Serious: Yes (Death, Life-Threatening, Hospitalization)
  Sender: FDA-Public Use
  Company Number: None

PATIENT
  Age: 14 Month
  Sex: Female
  Weight: 9.1 kg

DRUGS (4)
  1. SEVOFLURANE, USP PIRAMAL CRITICAL CARE [Suspect]
     Active Substance: SEVOFLURANE
     Indication: GENERAL ANAESTHESIA
     Dosage: 2.1% ET CONTINUOUS INHALATIONAL
     Route: 055
     Dates: start: 20160329
  2. ONDANSETRON [Concomitant]
     Active Substance: ONDANSETRON
  3. DECADRON [Concomitant]
     Active Substance: DEXAMETHASONE
  4. PROPOFOL. [Concomitant]
     Active Substance: PROPOFOL

REACTIONS (7)
  - Cough [None]
  - Cardiac output decreased [None]
  - Oxygen saturation decreased [None]
  - End-tidal CO2 decreased [None]
  - Blood pressure decreased [None]
  - Heart rate increased [None]
  - Poor peripheral circulation [None]

NARRATIVE: CASE EVENT DATE: 20160329
